FAERS Safety Report 4608500-6 (Version None)
Quarter: 2005Q1

REPORT INFORMATION
  Report Type: 
  Country: None (occurrence: None)
  Receive Date: 20050315
  Receipt Date: 20050105
  Transmission Date: 20050727
  Serious: Yes (Other)
  Sender: FDA-Public Use
  Company Number: 200510135US

PATIENT
  Sex: Female

DRUGS (6)
  1. NASACORT AQ [Suspect]
     Indication: MULTIPLE ALLERGIES
     Dosage: DOSE: UNKNOWN
     Dates: start: 20040101
  2. MEDROL [Concomitant]
     Dosage: DOSE: UNKNOWN
  3. ZITHROMAX [Concomitant]
     Dosage: DOSE: UNKNOWN
  4. COUGH AND COLD PREPARATIONS [Concomitant]
     Dosage: DOSE: UNKNOWN
  5. VICODIN [Concomitant]
     Dosage: DOSE: UNKNOWN
  6. DILANTIN [Concomitant]
     Dosage: DOSE: UNKNOWN

REACTIONS (3)
  - ACCIDENTAL OVERDOSE [None]
  - MACULAR HOLE [None]
  - MEDICATION ERROR [None]
